FAERS Safety Report 18692763 (Version 2)
Quarter: 2021Q1

REPORT INFORMATION
  Report Type: Spontaneous
  Country: ES (occurrence: ES)
  Receive Date: 20210104
  Receipt Date: 20210107
  Transmission Date: 20210419
  Serious: Yes (Hospitalization, Other)
  Sender: FDA-Public Use
  Company Number: ES-AUROBINDO-AUR-APL-2020-063967

PATIENT
  Age: 77 Year
  Sex: Male
  Weight: 69.3 kg

DRUGS (13)
  1. FLUOROURACIL. [Suspect]
     Active Substance: FLUOROURACIL
     Indication: COLORECTAL CANCER
     Dosage: 3532 MILLIGRAM, Q15D
     Route: 042
     Dates: start: 20201104, end: 20201104
  2. AFLIBERCEPT [Suspect]
     Active Substance: AFLIBERCEPT
     Indication: COLORECTAL CANCER
     Dosage: 278 MILLIGRAM,  Q15D
     Route: 042
     Dates: start: 20201104, end: 20201104
  3. FLUOROURACIL. [Suspect]
     Active Substance: FLUOROURACIL
     Dosage: 3532 MILLIGRAM, Q15D
     Route: 042
     Dates: start: 20201209, end: 20201209
  4. IRINOTECAN [Suspect]
     Active Substance: IRINOTECAN
     Indication: COLORECTAL CANCER
     Dosage: 264.9 MILLIGRAM, Q15D
     Route: 042
     Dates: start: 20201104, end: 20201104
  5. IRINOTECAN [Suspect]
     Active Substance: IRINOTECAN
     Dosage: 264.9 MILLIGRAM, Q15D
     Route: 042
     Dates: start: 20201209, end: 20201209
  6. AFLIBERCEPT [Suspect]
     Active Substance: AFLIBERCEPT
     Dosage: 278 MILLIGRAM,  Q15D
     Route: 042
     Dates: start: 20201209, end: 20201209
  7. HEPARIN [Concomitant]
     Active Substance: HEPARIN SODIUM
     Indication: THROMBOSIS PROPHYLAXIS
     Dosage: UNK
     Route: 058
     Dates: start: 2016
  8. FOLINIC ACID [Suspect]
     Active Substance: LEUCOVORIN
     Indication: COLORECTAL CANCER
     Dosage: 706.4 MILLIGRAM, Q15D
     Route: 042
     Dates: start: 20201104, end: 20201104
  9. FLUOROURACIL. [Suspect]
     Active Substance: FLUOROURACIL
     Dosage: 529.8 MILLIGRAM, Q15D
     Route: 040
     Dates: start: 20201104, end: 20201104
  10. FOLINIC ACID [Suspect]
     Active Substance: LEUCOVORIN
     Dosage: 706.4 MILLIGRAM, Q15D
     Route: 042
     Dates: start: 20201209, end: 20201209
  11. FLUOROURACIL. [Suspect]
     Active Substance: FLUOROURACIL
     Dosage: 529.8 MILLIGRAM,  Q15D
     Route: 040
     Dates: start: 20201209, end: 20201209
  12. AMLODIPINE [Concomitant]
     Active Substance: AMLODIPINE BESYLATE
     Indication: HYPERTENSION
     Dosage: 10 MILLIGRAM
     Route: 048
     Dates: start: 20201202
  13. VALSARTAN + HCTZ [Concomitant]
     Active Substance: HYDROCHLOROTHIAZIDE\VALSARTAN
     Indication: HYPERTENSION
     Dosage: 320/25 MG
     Route: 048
     Dates: start: 20201202

REACTIONS (1)
  - Renal failure [Recovered/Resolved]

NARRATIVE: CASE EVENT DATE: 20201216
